FAERS Safety Report 5017819-9 (Version None)
Quarter: 2006Q2

REPORT INFORMATION
  Report Type: 
  Country: None (occurrence: None)
  Receive Date: 20060605
  Receipt Date: 20060522
  Transmission Date: 20061013
  Serious: Yes (Other)
  Sender: FDA-Public Use
  Company Number: PHHO2006BR08589

PATIENT
  Age: 41 Year
  Sex: Female
  Weight: 60 kg

DRUGS (1)
  1. ZELMAC / HTF 919A [Suspect]
     Indication: DYSPEPSIA
     Dosage: 6 MG, BID
     Route: 048

REACTIONS (3)
  - AFFECTIVE DISORDER [None]
  - ASTHENIA [None]
  - DIARRHOEA [None]
